FAERS Safety Report 17184191 (Version 1)
Quarter: 2019Q4

REPORT INFORMATION
  Report Type: Spontaneous
  Country: US (occurrence: US)
  Receive Date: 20191220
  Receipt Date: 20191220
  Transmission Date: 20200122
  Serious: No
  Sender: FDA-Public Use
  Company Number: US-RECKITT BENCKISER HEALTHCARE INT LIMITED-RB-84401-2019

PATIENT
  Age: 73 Year
  Sex: Female

DRUGS (1)
  1. DELSYM [Suspect]
     Active Substance: DEXTROMETHORPHAN
     Indication: HYPERSENSITIVITY
     Dosage: PATIENT TOOK 3-4 DOSES OF THE DRUG A DAY OR IN A HALF
     Route: 065
     Dates: start: 201904

REACTIONS (4)
  - Product use in unapproved indication [Recovered/Resolved]
  - Product administered to patient of inappropriate age [Recovered/Resolved]
  - Diarrhoea [Recovered/Resolved]
  - Muscle spasms [Recovered/Resolved]

NARRATIVE: CASE EVENT DATE: 201904
